FAERS Safety Report 10020032 (Version 1)
Quarter: 2014Q1

REPORT INFORMATION
  Report Type: Spontaneous
  Country: US (occurrence: US)
  Receive Date: 20140318
  Receipt Date: 20140318
  Transmission Date: 20141002
  Serious: Yes (Other)
  Sender: FDA-Public Use
  Company Number: US-ALLERGAN-1404652US

PATIENT
  Age: 91 Year
  Sex: Female

DRUGS (3)
  1. ALPHAGAN P [Suspect]
     Indication: PRODUCT USED FOR UNKNOWN INDICATION
     Dosage: 1 DROP IN EACH EYE, BID, BID
     Route: 047
  2. ALPHAGAN P [Suspect]
     Dosage: 1 DROP IN EACH EYE, BID, BID
     Route: 047
     Dates: start: 201303
  3. ALPHAGAN P [Suspect]
     Dosage: 2 DROPS IN EACH EYE, BID
     Route: 047
     Dates: end: 201303

REACTIONS (5)
  - Cerebrovascular accident [Unknown]
  - Blindness [Recovering/Resolving]
  - Nerve compression [Unknown]
  - Ocular vascular disorder [Unknown]
  - Expired drug administered [Unknown]
